FAERS Safety Report 11636922 (Version 1)
Quarter: 2015Q4

REPORT INFORMATION
  Report Type: Spontaneous
  Country: PL (occurrence: PL)
  Receive Date: 20151016
  Receipt Date: 20151016
  Transmission Date: 20160304
  Serious: Yes (Other)
  Sender: FDA-Public Use
  Company Number: PL-TEVA-600538ACC

PATIENT
  Sex: Female

DRUGS (2)
  1. GABAPENTIN. [Suspect]
     Active Substance: GABAPENTIN
     Indication: HERPES ZOSTER
     Dates: start: 2014
  2. OXYCONTIN 5 MG [Concomitant]

REACTIONS (2)
  - Liver injury [Unknown]
  - Arthralgia [Recovered/Resolved]
